FAERS Safety Report 23400876 (Version 1)
Quarter: 2024Q1

REPORT INFORMATION
  Report Type: Spontaneous
  Country: US (occurrence: US)
  Receive Date: 20240115
  Receipt Date: 20240115
  Transmission Date: 20240410
  Serious: Yes (Other)
  Sender: FDA-Public Use
  Company Number: US-ORGANON-O2311USA003019

PATIENT
  Age: 36 Year
  Sex: Female
  Weight: 131.07 kg

DRUGS (4)
  1. NEXPLANON [Suspect]
     Active Substance: ETONOGESTREL
     Indication: Contraception
     Dosage: 1 IMPLANT IN LEFT ARM
     Route: 059
     Dates: start: 20201005, end: 20210121
  2. NEXPLANON [Suspect]
     Active Substance: ETONOGESTREL
     Dosage: 1 IMPLANT IN RIGHT UPPER ARM OVER THE TRICEPS MUSCLE, EVERY 3 YEARS
     Route: 059
     Dates: start: 20210121
  3. NEXPLANON [Concomitant]
     Active Substance: ETONOGESTREL
     Dosage: 1 IMPLANT
     Route: 059
  4. WEGOVY [Concomitant]
     Active Substance: SEMAGLUTIDE
     Dosage: UNK

REACTIONS (8)
  - Device expulsion [Recovered/Resolved]
  - Implant site infection [Unknown]
  - Weight decreased [Not Recovered/Not Resolved]
  - Complication associated with device [Recovered/Resolved]
  - Complication associated with device [Recovered/Resolved]
  - Device placement issue [Recovered/Resolved]
  - Complication of device removal [Recovered/Resolved]
  - Product dose omission issue [Unknown]

NARRATIVE: CASE EVENT DATE: 20210121
